FAERS Safety Report 6395860-1 (Version None)
Quarter: 2009Q4

REPORT INFORMATION
  Report Type: 
  Country: None (occurrence: None)
  Receive Date: 20091009
  Receipt Date: 20090727
  Transmission Date: 20100525
  Serious: No
  Sender: FDA-Public Use
  Company Number: A0798823A

PATIENT
  Age: 82 Year
  Sex: Female

DRUGS (7)
  1. TYKERB [Suspect]
     Indication: BREAST CANCER
     Dosage: 5TAB PER DAY
     Route: 048
     Dates: start: 20090716, end: 20090725
  2. XELODA [Suspect]
     Indication: BREAST CANCER
     Dosage: 2TAB TWICE PER DAY
     Dates: start: 20090716, end: 20090726
  3. AMLODIPINE [Concomitant]
  4. ISOSORBIDE [Concomitant]
  5. SERTRALINE HCL [Concomitant]
  6. ASPIRIN [Concomitant]
  7. CALCIUM + D. VITAMIN [Concomitant]

REACTIONS (4)
  - DIARRHOEA [None]
  - DISSOCIATION [None]
  - EMOTIONAL DISORDER [None]
  - VOMITING [None]
